FAERS Safety Report 16680642 (Version 2)
Quarter: 2021Q4

REPORT INFORMATION
  Report Type: Report from Study
  Country: IL (occurrence: IL)
  Receive Date: 20190808
  Receipt Date: 20211229
  Transmission Date: 20220303
  Serious: Yes (Death, Hospitalization)
  Sender: FDA-Public Use
  Company Number: IL-ABBVIE-19K-082-2878893-00

PATIENT
  Sex: Male

DRUGS (2)
  1. CARBIDOPA\LEVODOPA [Suspect]
     Active Substance: CARBIDOPA\LEVODOPA
     Indication: Parkinson^s disease
     Route: 050
     Dates: start: 20170731
  2. CARBIDOPA\LEVODOPA [Suspect]
     Active Substance: CARBIDOPA\LEVODOPA
     Dosage: CURRENT: MORNING 15.5 ML, CONTINUOUS RATE 4.2 ML/HOUR, ED 2.5 ML.
     Route: 050

REACTIONS (3)
  - Gallbladder necrosis [Fatal]
  - Decubitus ulcer [Fatal]
  - Localised infection [Not Recovered/Not Resolved]
